FAERS Safety Report 16261918 (Version 1)
Quarter: 2019Q2

REPORT INFORMATION
  Report Type: Spontaneous
  Country: NL (occurrence: NL)
  Receive Date: 20190501
  Receipt Date: 20190501
  Transmission Date: 20190711
  Serious: Yes (Hospitalization, Other)
  Sender: FDA-Public Use
  Company Number: NL-BIOGEN-2019BI00728937

PATIENT
  Age: 40 Year
  Sex: Female

DRUGS (1)
  1. TECFIDERA [Suspect]
     Active Substance: DIMETHYL FUMARATE
     Indication: MULTIPLE SCLEROSIS
     Route: 048

REACTIONS (5)
  - Depressed level of consciousness [Recovered/Resolved]
  - Generalised tonic-clonic seizure [Not Recovered/Not Resolved]
  - Aphasia [Not Recovered/Not Resolved]
  - Pyrexia [Not Recovered/Not Resolved]
  - Ataxia [Not Recovered/Not Resolved]

NARRATIVE: CASE EVENT DATE: 201904
